FAERS Safety Report 23267831 (Version 1)
Quarter: 2023Q4

REPORT INFORMATION
  Report Type: Spontaneous
  Country: US (occurrence: None)
  Receive Date: 20231205
  Receipt Date: 20231205
  Transmission Date: 20240110
  Serious: Yes (Other)
  Sender: FDA-Public Use
  Company Number: None

PATIENT
  Age: 46 Year
  Sex: Female

DRUGS (2)
  1. BUPROPION [Suspect]
     Active Substance: BUPROPION
     Indication: Major depression
     Dosage: FREQUENCY : DAILY;?
     Route: 048
     Dates: start: 20210217, end: 20230323
  2. Bupropion XL 300 mg, extended Release [Concomitant]
     Dates: start: 20210221, end: 20230323

REACTIONS (3)
  - Tremor [None]
  - Diarrhoea [None]
  - Headache [None]

NARRATIVE: CASE EVENT DATE: 20230323
